FAERS Safety Report 6524929-3 (Version None)
Quarter: 2010Q1

REPORT INFORMATION
  Report Type: 
  Country: None (occurrence: None)
  Receive Date: 20100104
  Receipt Date: 20091221
  Transmission Date: 20100710
  Serious: Yes (Other)
  Sender: FDA-Public Use
  Company Number: JP-PFIZER INC-2009296114

PATIENT
  Age: 63 Year
  Sex: Male
  Weight: 51 kg

DRUGS (13)
  1. VFEND [Suspect]
     Indication: FUNGAL INFECTION
     Dosage: 200 MG, 2X/DAY
     Route: 048
     Dates: start: 20080905
  2. SEROQUEL [Interacting]
     Indication: DELIRIUM
     Dosage: 25 MG DAILY
     Route: 048
     Dates: start: 20081022
  3. SEROQUEL [Interacting]
     Dosage: 50 MG, 1X/DAY
     Dates: start: 20081024
  4. SEROQUEL [Interacting]
     Dosage: 75 MG, 1X/DAY
     Dates: start: 20081029, end: 20081029
  5. ENTECAVIR [Concomitant]
     Indication: HEPATITIS B
     Dosage: UNK
     Route: 048
  6. PARIET [Concomitant]
     Indication: GASTRIC ULCER
     Dosage: UNK
     Route: 048
  7. PURSENNID [Concomitant]
     Indication: CONSTIPATION
     Dosage: UNK
     Route: 048
     Dates: start: 20080802
  8. MAG-LAX [Concomitant]
     Indication: CONSTIPATION
     Dosage: UNK
     Route: 048
     Dates: start: 20080926
  9. MUCOSTA [Concomitant]
     Indication: GASTRIC ULCER
     Dosage: UNK
     Route: 048
     Dates: start: 20081028
  10. MEVALOTIN [Concomitant]
     Indication: HYPERLIPIDAEMIA
     Dosage: UNK
     Route: 048
  11. ABILIFY [Concomitant]
     Indication: DELIRIUM
     Dosage: UNK
     Route: 048
     Dates: start: 20080905
  12. FENTANYL [Concomitant]
     Indication: PAIN
     Dosage: UNK
     Route: 062
  13. MORPHINE HYDROCHLORIDE [Concomitant]
     Indication: PAIN
     Dosage: UNK
     Route: 048

REACTIONS (2)
  - DEPRESSED LEVEL OF CONSCIOUSNESS [None]
  - DRUG INTERACTION [None]
